FAERS Safety Report 6264570-3 (Version None)
Quarter: 2009Q3

REPORT INFORMATION
  Report Type: 
  Country: None (occurrence: None)
  Receive Date: 20090710
  Receipt Date: 20090630
  Transmission Date: 20100115
  Serious: Yes (Other)
  Sender: FDA-Public Use
  Company Number: GB-TEVA-200758ISR

PATIENT
  Age: 48 Year
  Sex: Male
  Weight: 171 kg

DRUGS (1)
  1. DOXYCYCLINE [Suspect]
     Route: 048
     Dates: start: 20090501, end: 20090519

REACTIONS (2)
  - ORAL CANDIDIASIS [None]
  - TYPE 2 DIABETES MELLITUS [None]
